FAERS Safety Report 22138745 (Version 1)
Quarter: 2023Q1

REPORT INFORMATION
  Report Type: Spontaneous
  Country: US (occurrence: US)
  Receive Date: 20230327
  Receipt Date: 20230327
  Transmission Date: 20230418
  Serious: No
  Sender: FDA-Public Use
  Company Number: US-SUN PHARMACEUTICAL INDUSTRIES LTD-2022R1-369157

PATIENT
  Age: 26 Year
  Sex: Female

DRUGS (1)
  1. WINLEVI [Suspect]
     Active Substance: CLASCOTERONE
     Indication: Product used for unknown indication
     Dosage: UNK, BID
     Route: 065

REACTIONS (4)
  - Product physical consistency issue [Unknown]
  - Dermal absorption impaired [Unknown]
  - Discontinued product administered [Unknown]
  - Drug ineffective [Unknown]
